FAERS Safety Report 10082638 (Version 2)
Quarter: 2014Q2

REPORT INFORMATION
  Report Type: Spontaneous
  Country: US (occurrence: US)
  Receive Date: 20140416
  Receipt Date: 20140416
  Transmission Date: 20141212
  Serious: Yes (Other)
  Sender: FDA-Public Use
  Company Number: CHPA2014US005254

PATIENT
  Age: 6 Year
  Sex: Female

DRUGS (1)
  1. TRIAMINIC NIGHT TIME COLD + COUGH [Suspect]
     Dosage: 4 TSP, UNK
     Route: 048
     Dates: start: 20140410, end: 20140410

REACTIONS (2)
  - Asthma [Recovering/Resolving]
  - Incorrect dose administered [Unknown]
